FAERS Safety Report 26160254 (Version 1)
Quarter: 2025Q4

REPORT INFORMATION
  Report Type: Spontaneous
  Country: US (occurrence: US)
  Receive Date: 20251216
  Receipt Date: 20251216
  Transmission Date: 20260118
  Serious: Yes (Other)
  Sender: JOHNSON AND JOHNSON
  Company Number: US-JNJFOC-20251209860

PATIENT
  Sex: Female

DRUGS (1)
  1. TECVAYLI [Suspect]
     Active Substance: TECLISTAMAB-CQYV
     Indication: Plasma cell myeloma refractory

REACTIONS (3)
  - Diarrhoea haemorrhagic [Not Recovered/Not Resolved]
  - Clostridium difficile infection [Not Recovered/Not Resolved]
  - Liver function test increased [Not Recovered/Not Resolved]
